FAERS Safety Report 7006146-6 (Version None)
Quarter: 2010Q3

REPORT INFORMATION
  Report Type: 
  Country: None (occurrence: None)
  Receive Date: 20100921
  Receipt Date: 20100914
  Transmission Date: 20110219
  Serious: Yes (Other)
  Sender: FDA-Public Use
  Company Number: US-PFIZER INC-2010102155

PATIENT
  Sex: Female
  Weight: 52.154 kg

DRUGS (1)
  1. CHANTIX [Suspect]
     Indication: SMOKING CESSATION THERAPY
     Dosage: 0.5 MG, UNK
     Route: 048
     Dates: start: 20100801

REACTIONS (6)
  - DRUG INEFFECTIVE [None]
  - LACRIMATION INCREASED [None]
  - NAUSEA [None]
  - NIGHT BLINDNESS [None]
  - SLEEP DISORDER [None]
  - VISUAL ACUITY REDUCED [None]
